FAERS Safety Report 11801640 (Version 1)
Quarter: 2015Q4

REPORT INFORMATION
  Report Type: Spontaneous
  Country: US (occurrence: US)
  Receive Date: 20151204
  Receipt Date: 20151204
  Transmission Date: 20160305
  Serious: No
  Sender: FDA-Public Use
  Company Number: US-JNJFOC-20151103621

PATIENT
  Age: 57 Year
  Sex: Female
  Weight: 48.54 kg

DRUGS (2)
  1. PEPCID AC MAXIMUM STRENGTH [Suspect]
     Active Substance: FAMOTIDINE
     Indication: DYSPEPSIA
     Dosage: 20 MG, 1/2 TABLET EVERY DAY
     Route: 048
  2. PRILOSEC [Concomitant]
     Active Substance: OMEPRAZOLE MAGNESIUM
     Indication: GASTRIC DISORDER
     Dosage: 3 YEARS, 40MG IN THE MORNING AND 40MG AT NIGHT
     Route: 065

REACTIONS (2)
  - Drug ineffective [Unknown]
  - Wrong technique in product usage process [Unknown]
